FAERS Safety Report 6705304-5 (Version None)
Quarter: 2010Q2

REPORT INFORMATION
  Report Type: 
  Country: None (occurrence: None)
  Receive Date: 20100430
  Receipt Date: 20100422
  Transmission Date: 20101027
  Serious: Yes (Hospitalization)
  Sender: FDA-Public Use
  Company Number: US-AMGEN-KDC407953

PATIENT
  Sex: Female

DRUGS (30)
  1. PANITUMUMAB [Suspect]
     Indication: SQUAMOUS CELL CARCINOMA
     Route: 042
     Dates: start: 20100415
  2. CISPLATIN [Suspect]
  3. DOCETAXEL [Suspect]
  4. ACETAMINOPHEN W/ CODEINE [Concomitant]
  5. ADVIL [Concomitant]
  6. AMARYL [Concomitant]
  7. NOVOLOG [Concomitant]
  8. LANTUS [Concomitant]
  9. LOMOTIL [Concomitant]
  10. BACITRACIN [Concomitant]
  11. LIPITOR [Concomitant]
  12. SYNTHROID [Concomitant]
  13. FOLIC ACID [Concomitant]
  14. POTASSIUM CHLORIDE [Concomitant]
  15. NEXIUM [Concomitant]
  16. REGLAN [Concomitant]
  17. TEMAZEPAM [Concomitant]
  18. NITROGLYCERIN [Concomitant]
  19. CENTRUM SILVER [Concomitant]
  20. OSTEOBIFLEX [Concomitant]
  21. BRIMONIDINE [Concomitant]
     Route: 047
  22. TRAVATAN [Concomitant]
     Route: 047
  23. TIMOLOL [Concomitant]
     Route: 047
  24. AZOPT [Concomitant]
     Route: 047
  25. DECADRON [Concomitant]
     Dates: start: 20100415
  26. EMEND [Concomitant]
     Dates: start: 20100415
  27. MINOCYCLINE HCL [Concomitant]
     Dates: start: 20100415
  28. COMPAZINE [Concomitant]
     Dates: start: 20100415
  29. ZOFRAN [Concomitant]
     Dates: start: 20100415
  30. CLINDAMYCIN [Concomitant]
     Route: 061
     Dates: start: 20100415

REACTIONS (3)
  - BLOOD SODIUM DECREASED [None]
  - DEHYDRATION [None]
  - NEUTROPENIA [None]
